FAERS Safety Report 7380720-X (Version None)
Quarter: 2011Q1

REPORT INFORMATION
  Report Type: 
  Country: None (occurrence: None)
  Receive Date: 20110321
  Receipt Date: 20110308
  Transmission Date: 20110831
  Serious: Yes (Disabling)
  Sender: FDA-Public Use
  Company Number: 2011MA002294

PATIENT
  Sex: Female

DRUGS (1)
  1. METOCLOPRAMIDE TABLETS USP, 10 MG (PUREPAC) [Suspect]
     Indication: GASTROINTESTINAL DISORDER
     Dates: start: 19980501, end: 20100601

REACTIONS (10)
  - NERVOUS SYSTEM DISORDER [None]
  - ANXIETY [None]
  - DEFORMITY [None]
  - MENTAL DISORDER [None]
  - PAIN [None]
  - EMOTIONAL DISTRESS [None]
  - EXTRAPYRAMIDAL DISORDER [None]
  - PARTNER STRESS [None]
  - MULTIPLE INJURIES [None]
  - ACTIVITIES OF DAILY LIVING IMPAIRED [None]
